FAERS Safety Report 9980484 (Version 1)
Quarter: 2014Q1

REPORT INFORMATION
  Report Type: Spontaneous
  Country: FR (occurrence: FR)
  Receive Date: 20140307
  Receipt Date: 20140307
  Transmission Date: 20141002
  Serious: Yes (Other)
  Sender: FDA-Public Use
  Company Number: FR-ROCHE-1358315

PATIENT
  Age: 69 Year
  Sex: Female

DRUGS (13)
  1. ZELBORAF [Suspect]
     Indication: METASTATIC MALIGNANT MELANOMA
     Route: 048
     Dates: start: 20130614
  2. ZELBORAF [Suspect]
     Route: 048
     Dates: start: 20131205
  3. TEMODAL [Suspect]
     Indication: METASTATIC MALIGNANT MELANOMA
     Route: 048
     Dates: start: 20130912, end: 20130916
  4. OFLOCET [Concomitant]
     Route: 048
     Dates: start: 20131010, end: 20131020
  5. DETICENE [Concomitant]
     Route: 065
     Dates: start: 2009
  6. DETICENE [Concomitant]
     Route: 065
     Dates: start: 201009
  7. YERVOY [Concomitant]
     Route: 065
     Dates: start: 20110110
  8. YERVOY [Concomitant]
     Route: 065
     Dates: start: 20110201
  9. YERVOY [Concomitant]
     Route: 065
     Dates: start: 20110122
  10. LODOZ [Concomitant]
  11. LEXOMIL [Concomitant]
  12. STILNOX [Concomitant]
  13. ZALDIAR [Concomitant]

REACTIONS (2)
  - Cholestasis [Recovered/Resolved]
  - Blood alkaline phosphatase increased [Unknown]
